FAERS Safety Report 13238471 (Version 2)
Quarter: 2017Q2

REPORT INFORMATION
  Report Type: Spontaneous
  Country: US (occurrence: US)
  Receive Date: 20170216
  Receipt Date: 20170529
  Transmission Date: 20170830
  Serious: No
  Sender: FDA-Public Use
  Company Number: US-009507513-1702USA006369

PATIENT
  Age: 37 Year
  Sex: Male
  Weight: 126.98 kg

DRUGS (5)
  1. HYZAAR [Concomitant]
     Active Substance: HYDROCHLOROTHIAZIDE\LOSARTAN POTASSIUM
     Dosage: 100/25
  2. FLONASE [Concomitant]
     Active Substance: FLUTICASONE PROPIONATE
  3. OMEPRAZOLE. [Concomitant]
     Active Substance: OMEPRAZOLE
     Indication: GASTROOESOPHAGEAL REFLUX DISEASE
     Dosage: 40 MG, AS NEEDED
  4. TRYPTANOL [Concomitant]
     Active Substance: AMITRIPTYLINE
     Indication: INSOMNIA
     Dosage: 25 MG, AS NEEDED
  5. BELSOMRA [Suspect]
     Active Substance: SUVOREXANT
     Indication: INSOMNIA
     Dosage: 1 TABLET, AT BED TIME
     Route: 048
     Dates: start: 20160528, end: 20160530

REACTIONS (7)
  - Incoherent [Not Recovered/Not Resolved]
  - Paralysis [Not Recovered/Not Resolved]
  - Aphasia [Recovered/Resolved]
  - Disturbance in attention [Not Recovered/Not Resolved]
  - Drug ineffective [Not Recovered/Not Resolved]
  - Fear [Not Recovered/Not Resolved]
  - Somnolence [Not Recovered/Not Resolved]

NARRATIVE: CASE EVENT DATE: 20160528
